FAERS Safety Report 8738156 (Version 2)
Quarter: 2013Q4

REPORT INFORMATION
  Report Type: Report from Study
  Country: JP (occurrence: JP)
  Receive Date: 20120823
  Receipt Date: 20131101
  Transmission Date: 20140711
  Serious: Yes (Other)
  Sender: FDA-Public Use
  Company Number: JP-009507513-1208JPN006108

PATIENT
  Age: 63 Year
  Sex: Male
  Weight: 56 kg

DRUGS (12)
  1. PEGINTRON [Suspect]
     Indication: HEPATITIS C
     Dosage: 1.5 MICROGRAM PER KILOGRAM, QW
     Route: 058
     Dates: start: 20120529, end: 20120626
  2. PEGINTRON [Suspect]
     Dosage: 0.8 MICROGRAM PER KILOGRAM, UNK
     Route: 058
     Dates: start: 20120627
  3. REBETOL [Suspect]
     Indication: HEPATITIS C
     Dosage: 600 MG, QD
     Route: 048
     Dates: start: 20120529, end: 20120626
  4. REBETOL [Suspect]
     Dosage: 400 MG, QD
     Route: 048
     Dates: start: 20120627, end: 20120709
  5. REBETOL [Suspect]
     Dosage: 200 MG, QD
     Route: 048
     Dates: start: 20120710
  6. TELAVIC [Suspect]
     Indication: HEPATITIS C
     Dosage: 2250 MG, QD
     Route: 048
     Dates: start: 20120529, end: 20120608
  7. RIKKUNSHI-TO [Concomitant]
     Route: 048
  8. SULPIRIDE [Concomitant]
  9. DOMPERIDONE [Concomitant]
     Dosage: UNK, PRN
  10. LORFENAMIN [Concomitant]
     Dosage: UNK, PRN
     Route: 048
  11. EPADEL [Concomitant]
     Route: 048
  12. L CARTIN [Concomitant]
     Route: 048

REACTIONS (1)
  - Rash [Recovering/Resolving]
